FAERS Safety Report 6287318-5 (Version None)
Quarter: 2009Q3

REPORT INFORMATION
  Report Type: 
  Country: None (occurrence: None)
  Receive Date: 20090716
  Receipt Date: 20081112
  Transmission Date: 20100115
  Serious: Yes (Hospitalization)
  Sender: FDA-Public Use
  Company Number: 2008BI030823

PATIENT
  Sex: Female

DRUGS (1)
  1. AVONEX [Suspect]
     Indication: MULTIPLE SCLEROSIS

REACTIONS (7)
  - COGNITIVE DISORDER [None]
  - FACE INJURY [None]
  - FEELING OF BODY TEMPERATURE CHANGE [None]
  - INFLUENZA [None]
  - INJECTION SITE PAIN [None]
  - JOINT INJURY [None]
  - MULTIPLE SCLEROSIS [None]
